FAERS Safety Report 24773147 (Version 1)
Quarter: 2024Q4

REPORT INFORMATION
  Report Type: Spontaneous
  Country: US (occurrence: US)
  Receive Date: 20241225
  Receipt Date: 20241225
  Transmission Date: 20250115
  Serious: No
  Sender: AMGEN
  Company Number: US-AMGEN-USASP2024251121

PATIENT

DRUGS (1)
  1. CARFILZOMIB [Suspect]
     Active Substance: CARFILZOMIB
     Indication: Plasma cell myeloma refractory
     Dosage: UNK, 20/27 MG/M^2 INTRAVENOUS [IV] ON DAYS 1, 2, 8, 9, 15 AND 16, 28 DAYS CYCLE
     Route: 040

REACTIONS (1)
  - Therapeutic product effect incomplete [Unknown]
